FAERS Safety Report 12963112 (Version 2)
Quarter: 2016Q4

REPORT INFORMATION
  Report Type: Report from Study
  Country: JP (occurrence: JP)
  Receive Date: 20161122
  Receipt Date: 20161206
  Transmission Date: 20170207
  Serious: Yes (Hospitalization)
  Sender: FDA-Public Use
  Company Number: JP-ROCHE-1855435

PATIENT
  Age: 18 Year
  Sex: Female
  Weight: 53.5 kg

DRUGS (13)
  1. BLINDED TOCILIZUMAB [Suspect]
     Active Substance: TOCILIZUMAB
     Indication: TAKAYASU^S ARTERITIS
     Route: 058
     Dates: start: 20150821, end: 20151022
  2. PREDNISOLONE. [Suspect]
     Active Substance: PREDNISOLONE
     Indication: TAKAYASU^S ARTERITIS
     Route: 048
     Dates: end: 20161012
  3. PREDNISOLONE. [Suspect]
     Active Substance: PREDNISOLONE
     Indication: TAKAYASU^S ARTERITIS
     Route: 048
     Dates: start: 20161013, end: 20161031
  4. MIYA-BM [Concomitant]
     Active Substance: CLOSTRIDIUM BUTYRICUM SPORES STRAIN M-55
  5. PREDNISOLONE. [Suspect]
     Active Substance: PREDNISOLONE
     Indication: TAKAYASU^S ARTERITIS
     Route: 048
     Dates: start: 20161101, end: 20161109
  6. BONALON [Concomitant]
     Active Substance: ALENDRONATE SODIUM
     Indication: OSTEOPOROSIS PROPHYLAXIS
     Dosage: SUNDAY AND THE BEGINNING OF DOSAGE DAY: BEFORE IT PARTICIPATES IN THE TRIAL
     Route: 048
  7. SELBEX [Concomitant]
     Active Substance: TEPRENONE
     Indication: GASTRITIS PROPHYLAXIS
     Dosage: THE BEGINNING OF DOSAGE DAY: BEFORE IT PARTICIPATES IN THE TRIAL
     Route: 048
  8. BARAMYCIN [Concomitant]
     Active Substance: BACITRACIN\NEOMYCIN SULFATE
     Indication: SKIN EXFOLIATION
     Dosage: PROPERLY
     Route: 061
     Dates: start: 20161023, end: 20161106
  9. PREDNISOLONE. [Suspect]
     Active Substance: PREDNISOLONE
     Indication: TAKAYASU^S ARTERITIS
     Route: 048
     Dates: start: 20161110
  10. PRIMPERAN [Concomitant]
     Active Substance: METOCLOPRAMIDE HYDROCHLORIDE
     Indication: NAUSEA
     Route: 048
     Dates: start: 20161103
  11. LOXONIN [Concomitant]
     Active Substance: LOXOPROFEN SODIUM
  12. TOCILIZUMAB [Suspect]
     Active Substance: TOCILIZUMAB
     Indication: TAKAYASU^S ARTERITIS
     Route: 058
     Dates: start: 20151028
  13. ATARAX-P [Concomitant]
     Active Substance: HYDROXYZINE HYDROCHLORIDE
     Indication: INSOMNIA
     Dosage: THE BEGINNING OF DOSAGE DAY: BEFORE IT PARTICIPATES IN THE TRIAL
     Route: 048

REACTIONS (1)
  - Complex regional pain syndrome [Not Recovered/Not Resolved]

NARRATIVE: CASE EVENT DATE: 20161102
